FAERS Safety Report 4749087-7 (Version None)
Quarter: 2005Q3

REPORT INFORMATION
  Report Type: 
  Country: None (occurrence: None)
  Receive Date: 20050819
  Receipt Date: 20050627
  Transmission Date: 20060218
  Serious: Yes (Other)
  Sender: FDA-Public Use
  Company Number: JP-ROCHE-409668

PATIENT
  Age: 51 Year
  Sex: Female

DRUGS (4)
  1. PEGASYS [Suspect]
     Route: 058
     Dates: start: 20050318
  2. URSODIOL [Concomitant]
     Route: 048
     Dates: start: 20010514
  3. GASTER D [Concomitant]
     Route: 048
     Dates: start: 20050722
  4. DOGMATYL [Concomitant]
     Route: 048
     Dates: start: 20050318

REACTIONS (4)
  - ANTIBODY TEST POSITIVE [None]
  - HYPERTHYROIDISM [None]
  - HYPOTHYROIDISM [None]
  - PANCYTOPENIA [None]
